FAERS Safety Report 4702952-9 (Version None)
Quarter: 2005Q2

REPORT INFORMATION
  Report Type: 
  Country: None (occurrence: None)
  Receive Date: 20050629
  Receipt Date: 20050620
  Transmission Date: 20051028
  Serious: Yes (Life-Threatening, Hospitalization)
  Sender: FDA-Public Use
  Company Number: GB-ROCHE-408380

PATIENT
  Age: 59 Year
  Sex: Female

DRUGS (3)
  1. ORLISTAT [Suspect]
     Indication: DRUG USE FOR UNKNOWN INDICATION
     Route: 048
  2. METFORMIN [Interacting]
     Indication: DIABETES MELLITUS
     Route: 048
  3. CIMETIDINE [Suspect]
     Indication: ABDOMINAL PAIN
     Route: 048

REACTIONS (15)
  - ACUTE PRERENAL FAILURE [None]
  - AGITATION [None]
  - ASTHENIA [None]
  - CEREBROVASCULAR DISORDER [None]
  - DEPRESSED LEVEL OF CONSCIOUSNESS [None]
  - DIARRHOEA [None]
  - DIZZINESS [None]
  - DRUG INTERACTION [None]
  - DUODENAL ULCER [None]
  - DYSARTHRIA [None]
  - LACTIC ACIDOSIS [None]
  - METABOLIC ACIDOSIS [None]
  - RENAL FAILURE ACUTE [None]
  - SHOCK [None]
  - VISION BLURRED [None]
